FAERS Safety Report 10710283 (Version 1)
Quarter: 2015Q1

REPORT INFORMATION
  Report Type: Spontaneous
  Country: GB (occurrence: None)
  Receive Date: 20150112
  Receipt Date: 20150112
  Transmission Date: 20150721
  Serious: Yes (Other)
  Sender: FDA-Public Use
  Company Number: COL_18906_2015

PATIENT
  Age: 49 Year
  Sex: Female
  Weight: 88.9 kg

DRUGS (4)
  1. COLGATE DURAPHAT [Suspect]
     Active Substance: SODIUM FLUORIDE
     Indication: TOOTHACHE
     Dosage: (1 DF/ BID / ORAL)
     Route: 048
     Dates: start: 20141218, end: 20141228
  2. AMITRIPTYLINE [Concomitant]
     Active Substance: AMITRIPTYLINE
  3. PAROXETINE [Concomitant]
     Active Substance: PAROXETINE\PAROXETINE HYDROCHLORIDE
  4. COLGATE DURAPHAT [Suspect]
     Active Substance: SODIUM FLUORIDE
     Indication: DENTAL CARIES
     Dosage: (1 DF/ BID / ORAL)
     Route: 048
     Dates: start: 20141218, end: 20141228

REACTIONS (3)
  - Mouth swelling [None]
  - Oral pain [None]
  - Gingival pain [None]

NARRATIVE: CASE EVENT DATE: 201412
